FAERS Safety Report 5227511-3 (Version None)
Quarter: 2007Q1

REPORT INFORMATION
  Report Type: 
  Country: None (occurrence: None)
  Receive Date: 20070202
  Receipt Date: 20070122
  Transmission Date: 20070707
  Serious: Yes (Hospitalization)
  Sender: FDA-Public Use
  Company Number: US-SHR-US-2004-025175

PATIENT
  Age: 49 Year
  Sex: Male

DRUGS (5)
  1. BETASERON [Suspect]
     Indication: MULTIPLE SCLEROSIS
     Dosage: 8 MIU, EVERY 2D
     Route: 058
     Dates: start: 19981111, end: 20000301
  2. BETASERON [Suspect]
     Dosage: 8 MIU, EVERY 2D
     Route: 058
     Dates: start: 20011201, end: 20040507
  3. AMANTADINE HCL [Concomitant]
     Indication: FATIGUE
     Dates: start: 20030101, end: 20040507
  4. M.V.I. [Concomitant]
     Indication: VITAMIN SUPPLEMENTATION
     Dates: start: 20000101, end: 20040507
  5. NOVANTRONE [Concomitant]
     Dates: start: 20020101, end: 20040301

REACTIONS (1)
  - LEUKAEMIA [None]
